FAERS Safety Report 5446438-5 (Version None)
Quarter: 2007Q3

REPORT INFORMATION
  Report Type: 
  Country: None (occurrence: None)
  Receive Date: 20070907
  Receipt Date: 20070903
  Transmission Date: 20080115
  Serious: Yes (Disabling)
  Sender: FDA-Public Use
  Company Number: ES-MERCK-0709ESP00003

PATIENT
  Age: 59 Year
  Sex: Female

DRUGS (1)
  1. INDOCIN [Suspect]
     Indication: GOUT
     Route: 048
     Dates: start: 20070827, end: 20070901

REACTIONS (2)
  - HEADACHE [None]
  - URINARY TRACT INFECTION [None]
